FAERS Safety Report 15475034 (Version 2)
Quarter: 2018Q4

REPORT INFORMATION
  Report Type: Spontaneous
  Country: KR (occurrence: KR)
  Receive Date: 20181008
  Receipt Date: 20181017
  Transmission Date: 20190205
  Serious: Yes (Other)
  Sender: FDA-Public Use
  Company Number: KR-PFIZER INC-2018402983

PATIENT
  Age: 70 Year
  Sex: Female

DRUGS (6)
  1. SPIRONOLACTONE. [Interacting]
     Active Substance: SPIRONOLACTONE
     Indication: PLEURAL EFFUSION
  2. COLCHICINE. [Interacting]
     Active Substance: COLCHICINE
     Indication: PERICARDIAL EFFUSION
     Dosage: 1.2 MG, DAILY (SEVERAL MONTHS)
  3. FUROSEMIDE. [Interacting]
     Active Substance: FUROSEMIDE
     Indication: GENERALISED OEDEMA
     Dosage: 80 MG, UNK
  4. SPIRONOLACTONE. [Suspect]
     Active Substance: SPIRONOLACTONE
     Indication: GENERALISED OEDEMA
     Dosage: 25 MG, UNK
  5. FUROSEMIDE. [Interacting]
     Active Substance: FUROSEMIDE
     Indication: PLEURAL EFFUSION
  6. COLCHICINE. [Interacting]
     Active Substance: COLCHICINE
     Indication: HYPERURICAEMIA

REACTIONS (2)
  - Neuromyopathy [Recovering/Resolving]
  - Drug interaction [Recovering/Resolving]
